FAERS Safety Report 10070229 (Version 1)
Quarter: 2014Q2

REPORT INFORMATION
  Report Type: Spontaneous
  Country: DE (occurrence: None)
  Receive Date: 20140408
  Receipt Date: 20140408
  Transmission Date: 20141212
  Serious: Yes (Other)
  Sender: FDA-Public Use
  Company Number: SYM-2014-19250

PATIENT
  Age: 61 Year
  Sex: Male

DRUGS (1)
  1. ELONTRIL [Suspect]
     Indication: DEPRESSION
     Route: 048

REACTIONS (1)
  - Panic attack [None]
